FAERS Safety Report 9820201 (Version 1)
Quarter: 2014Q1

REPORT INFORMATION
  Report Type: Spontaneous
  Country: US (occurrence: None)
  Receive Date: 20140113
  Receipt Date: 20140113
  Transmission Date: 20141002
  Serious: Yes (Other)
  Sender: FDA-Public Use
  Company Number: None

PATIENT
  Age: 66 Year
  Sex: Female
  Weight: 106.6 kg

DRUGS (2)
  1. CLEAR EYES COOLING REDNESS RELIEF [Suspect]
     Indication: OCULAR HYPERAEMIA
     Route: 047
     Dates: start: 20131015
  2. CLEAR EYES COOLING REDNESS RELIEF [Suspect]
     Indication: EYE PRURITUS
     Route: 047
     Dates: start: 20131015

REACTIONS (5)
  - Eye pain [None]
  - Vertigo [None]
  - Nausea [None]
  - Headache [None]
  - Feeling abnormal [None]
